FAERS Safety Report 13250540 (Version 2)
Quarter: 2017Q1

REPORT INFORMATION
  Report Type: Spontaneous
  Country: JP (occurrence: JP)
  Receive Date: 20170219
  Receipt Date: 20170322
  Transmission Date: 20170428
  Serious: No
  Sender: FDA-Public Use
  Company Number: JP-B.I. PHARMACEUTICALS,INC./RIDGEFIELD-2017-NB-000804

PATIENT
  Age: 51 Year
  Sex: Female
  Weight: 30 kg

DRUGS (3)
  1. GILOTRIF [Suspect]
     Active Substance: AFATINIB
     Indication: METASTASES TO MENINGES
     Dosage: 3 AND 4 MOTHS ON A DOSE OF 40 MG DAILY
     Route: 048
  2. GEFITINIB [Concomitant]
     Active Substance: GEFITINIB
     Indication: LUNG ADENOCARCINOMA STAGE IV
     Route: 065
  3. GILOTRIF [Suspect]
     Active Substance: AFATINIB
     Indication: LUNG NEOPLASM MALIGNANT
     Dosage: 3 AND 4 MOTHS ON A DOSE OF 40 MG DAILY
     Route: 048
     Dates: start: 20151124, end: 20160328

REACTIONS (1)
  - Paronychia [Recovered/Resolved]

NARRATIVE: CASE EVENT DATE: 201603
